FAERS Safety Report 8167436-7 (Version None)
Quarter: 2012Q1

REPORT INFORMATION
  Report Type: 
  Country: None (occurrence: None)
  Receive Date: 20120221
  Receipt Date: 20120210
  Transmission Date: 20120608
  Serious: Yes (Other)
  Sender: FDA-Public Use
  Company Number: 2007JP005190

PATIENT
  Age: 16 Year
  Sex: Female

DRUGS (6)
  1. PROGRAF [Suspect]
     Indication: RENAL TRANSPLANT
  2. PROGRAF [Suspect]
     Indication: IMMUNOSUPPRESSANT DRUG THERAPY
  3. MYCOPHENOLATE MOFETIL [Concomitant]
  4. BASILIXIMAB (BASILIXIMAB) [Concomitant]
  5. RITUXIMAB (RITUXIMAB) [Concomitant]
  6. METHYLPREDNISOLONE [Concomitant]

REACTIONS (3)
  - UPPER RESPIRATORY TRACT INFECTION [None]
  - IGA NEPHROPATHY [None]
  - DISEASE RECURRENCE [None]
